FAERS Safety Report 17955525 (Version 1)
Quarter: 2020Q2

REPORT INFORMATION
  Report Type: Spontaneous
  Country: US (occurrence: US)
  Receive Date: 20200629
  Receipt Date: 20200629
  Transmission Date: 20200714
  Serious: Yes (Death)
  Sender: FDA-Public Use
  Company Number: US-ROCHE-2632880

PATIENT
  Age: 71 Year
  Sex: Female

DRUGS (1)
  1. ESBRIET [Suspect]
     Active Substance: PIRFENIDONE
     Indication: PRODUCT USED FOR UNKNOWN INDICATION
     Dosage: 3X267 MG TID
     Route: 048
     Dates: start: 20200320, end: 202006

REACTIONS (1)
  - Death [Fatal]

NARRATIVE: CASE EVENT DATE: 20200602
